FAERS Safety Report 13896243 (Version 1)
Quarter: 2017Q3

REPORT INFORMATION
  Report Type: Spontaneous
  Country: US (occurrence: US)
  Receive Date: 20170822
  Receipt Date: 20170822
  Transmission Date: 20171127
  Serious: Yes (Disabling)
  Sender: FDA-Public Use
  Company Number: None

PATIENT
  Sex: Male
  Weight: 94.5 kg

DRUGS (3)
  1. CONCERTA [Concomitant]
     Active Substance: METHYLPHENIDATE HYDROCHLORIDE
  2. METHYLPHENIDATE HCL ER 36MG [Suspect]
     Active Substance: METHYLPHENIDATE HYDROCHLORIDE
     Indication: ATTENTION DEFICIT/HYPERACTIVITY DISORDER
     Dosage: ?          QUANTITY:60 DROP(S);OTHER ROUTE:SWALLOWED?
     Route: 048
     Dates: start: 20150504, end: 20150508
  3. INVEGA [Concomitant]
     Active Substance: PALIPERIDONE

REACTIONS (6)
  - Arthropathy [None]
  - Product quality issue [None]
  - Asthenia [None]
  - Headache [None]
  - Malaise [None]
  - Immune system disorder [None]

NARRATIVE: CASE EVENT DATE: 20150510
